FAERS Safety Report 10141806 (Version 1)
Quarter: 2014Q2

REPORT INFORMATION
  Report Type: Spontaneous
  Country: BR (occurrence: BR)
  Receive Date: 20140429
  Receipt Date: 20140429
  Transmission Date: 20141212
  Serious: Yes (Other)
  Sender: FDA-Public Use
  Company Number: PHHY2014BR050958

PATIENT
  Sex: Female

DRUGS (4)
  1. DIOVAN [Suspect]
     Dosage: UNK UKN, UNK
  2. DIOVAN TRIPLE [Suspect]
     Dosage: UNK UKN, UNK
  3. CAPTOPRIL [Concomitant]
     Dosage: UNK UKN, UNK
  4. CRESTOR [Concomitant]
     Indication: BLOOD CHOLESTEROL ABNORMAL
     Dosage: UNK UKN, UNK

REACTIONS (3)
  - Fall [Recovered/Resolved]
  - Paralysis [Recovered/Resolved]
  - Syncope [Recovered/Resolved]
